FAERS Safety Report 5161222-8 (Version None)
Quarter: 2006Q4

REPORT INFORMATION
  Report Type: 
  Country: None (occurrence: None)
  Receive Date: 20061130
  Receipt Date: 20060824
  Transmission Date: 20070319
  Serious: No
  Sender: FDA-Public Use
  Company Number: US-BRISTOL-MYERS SQUIBB COMPANY-13488978

PATIENT
  Sex: Female

DRUGS (2)
  1. ERBITUX [Suspect]
     Indication: COLORECTAL CANCER METASTATIC
     Dates: start: 20050201
  2. BENADRYL [Concomitant]
     Indication: PREMEDICATION

REACTIONS (3)
  - PRURITUS [None]
  - SKIN INFECTION [None]
  - URTICARIA [None]
